FAERS Safety Report 11988197 (Version 4)
Quarter: 2016Q1

REPORT INFORMATION
  Report Type: Spontaneous
  Country: US (occurrence: US)
  Receive Date: 20160202
  Receipt Date: 20160309
  Transmission Date: 20160526
  Serious: No
  Sender: FDA-Public Use
  Company Number: US-PFIZER INC-2016022057

PATIENT
  Age: 49 Year
  Sex: Male

DRUGS (2)
  1. SOMAVERT [Suspect]
     Active Substance: PEGVISOMANT
     Indication: ACROMEGALY
     Dosage: 10 MG, DAILY
     Dates: start: 20130901
  2. CABERGOLINE. [Suspect]
     Active Substance: CABERGOLINE
     Dosage: UNK, 2X/WEEK

REACTIONS (2)
  - Peripheral swelling [Unknown]
  - Vertigo [Unknown]
